FAERS Safety Report 15713896 (Version 1)
Quarter: 2018Q4

REPORT INFORMATION
  Report Type: Spontaneous
  Country: US (occurrence: US)
  Receive Date: 20181212
  Receipt Date: 20181212
  Transmission Date: 20190205
  Serious: Yes (Other)
  Sender: FDA-Public Use
  Company Number: None

PATIENT
  Age: 49 Year
  Sex: Female

DRUGS (8)
  1. LEVORPHANOL 2 MG [Suspect]
     Active Substance: LEVORPHANOL TARTRATE
     Indication: INJURY
     Route: 048
  2. MULTI VITAMIN [Concomitant]
     Active Substance: VITAMINS
  3. CALCIUM [Concomitant]
     Active Substance: CALCIUM
  4. LEVORPHANOL 2 MG [Suspect]
     Active Substance: LEVORPHANOL TARTRATE
     Indication: NEURALGIA
     Route: 048
  5. VITAMIN C [Concomitant]
     Active Substance: ASCORBIC ACID
  6. PROBIOTICS [Concomitant]
     Active Substance: PROBIOTICS NOS
  7. COD LIVER OIL [Concomitant]
     Active Substance: COD LIVER OIL
  8. MAGNESIUM [Concomitant]
     Active Substance: MAGNESIUM

REACTIONS (7)
  - Drug ineffective [None]
  - Product quality control issue [None]
  - Eye pain [None]
  - Oral pain [None]
  - Drug effect increased [None]
  - Drug effect variable [None]
  - Somnambulism [None]

NARRATIVE: CASE EVENT DATE: 20181209
